FAERS Safety Report 25637385 (Version 2)
Quarter: 2025Q3

REPORT INFORMATION
  Report Type: Spontaneous
  Country: US (occurrence: US)
  Receive Date: 20250804
  Receipt Date: 20250924
  Transmission Date: 20251021
  Serious: Yes (Other)
  Sender: ASTELLAS
  Company Number: US-ASTELLAS-2024-AER-024254

PATIENT
  Age: 53 Year
  Sex: Male

DRUGS (2)
  1. PADCEV [Suspect]
     Active Substance: ENFORTUMAB VEDOTIN-EJFV
     Indication: Bladder cancer
     Route: 065
     Dates: start: 20240918
  2. KEYTRUDA [Concomitant]
     Active Substance: PEMBROLIZUMAB
     Indication: Product used for unknown indication
     Route: 065

REACTIONS (11)
  - Neuropathy peripheral [Not Recovered/Not Resolved]
  - Pyrexia [Not Recovered/Not Resolved]
  - Insomnia [Not Recovered/Not Resolved]
  - Dysuria [Not Recovered/Not Resolved]
  - Dyschezia [Not Recovered/Not Resolved]
  - Micturition disorder [Not Recovered/Not Resolved]
  - Bowel movement irregularity [Not Recovered/Not Resolved]
  - Nausea [Not Recovered/Not Resolved]
  - Brain fog [Not Recovered/Not Resolved]
  - Memory impairment [Not Recovered/Not Resolved]
  - Jaundice [Not Recovered/Not Resolved]

NARRATIVE: CASE EVENT DATE: 20241206
